FAERS Safety Report 7100004-4 (Version None)
Quarter: 2010Q4

REPORT INFORMATION
  Report Type: 
  Country: None (occurrence: None)
  Receive Date: 20101112
  Receipt Date: 20100914
  Transmission Date: 20110411
  Serious: No
  Sender: FDA-Public Use
  Company Number: US-BAYER-201032923NA

PATIENT
  Age: 86 Year
  Sex: Male

DRUGS (7)
  1. SOTALOL [Suspect]
  2. CARVEDILOL [Suspect]
     Indication: ARRHYTHMIA
     Route: 048
     Dates: start: 20091001
  3. CARVEDILOL [Suspect]
     Route: 048
     Dates: start: 20091001
  4. CARVEDILOL [Suspect]
     Route: 048
  5. CARVEDILOL [Suspect]
     Indication: ARRHYTHMIA
  6. DIOVAN [Suspect]
     Dates: start: 20080101
  7. LIPITOR [Suspect]
     Dates: start: 20070101

REACTIONS (4)
  - ASTHENIA [None]
  - DRUG INTERACTION [None]
  - DYSPNOEA [None]
  - FATIGUE [None]
